FAERS Safety Report 21066634 (Version 4)
Quarter: 2022Q3

REPORT INFORMATION
  Report Type: Report from Study
  Country: US (occurrence: US)
  Receive Date: 20220711
  Receipt Date: 20220929
  Transmission Date: 20221027
  Serious: Yes (Other)
  Sender: FDA-Public Use
  Company Number: US-ABBVIE-22K-163-4460856-00

PATIENT
  Age: 52 Year
  Sex: Female

DRUGS (1)
  1. HUMIRA [Suspect]
     Active Substance: ADALIMUMAB
     Indication: Rheumatoid arthritis
     Dosage: CITRATE FREE
     Route: 058

REACTIONS (6)
  - Deafness [Unknown]
  - Brain neoplasm [Not Recovered/Not Resolved]
  - Nasal congestion [Unknown]
  - Ear infection [Not Recovered/Not Resolved]
  - Facial pain [Unknown]
  - Ear pain [Unknown]

NARRATIVE: CASE EVENT DATE: 20220702
